FAERS Safety Report 20490374 (Version 1)
Quarter: 2022Q1

REPORT INFORMATION
  Report Type: Spontaneous
  Country: US (occurrence: US)
  Receive Date: 20220218
  Receipt Date: 20220218
  Transmission Date: 20220423
  Serious: Yes (Other)
  Sender: FDA-Public Use
  Company Number: US-009507513-2202USA003545

PATIENT
  Sex: Male
  Weight: 83.9 kg

DRUGS (2)
  1. PEGINTRON [Suspect]
     Active Substance: PEGINTERFERON ALFA-2B
     Indication: Hepatitis C
  2. PEGINTERFERON ALFA-2B\RIBAVIRIN [Suspect]
     Active Substance: PEGINTERFERON ALFA-2B\RIBAVIRIN
     Indication: Hepatitis C

REACTIONS (6)
  - Suicidal behaviour [Unknown]
  - Hair disorder [Unknown]
  - Lip injury [Unknown]
  - Ingrown hair [Unknown]
  - Herpes zoster [Unknown]
  - Depressed mood [Unknown]
